FAERS Safety Report 9804124 (Version 3)
Quarter: 2014Q1

REPORT INFORMATION
  Report Type: Spontaneous
  Country: US (occurrence: US)
  Receive Date: 20140108
  Receipt Date: 20140124
  Transmission Date: 20141002
  Serious: Yes (Other)
  Sender: FDA-Public Use
  Company Number: US-PFIZER INC-2013373490

PATIENT
  Age: 53 Year
  Sex: Female

DRUGS (6)
  1. ENBREL [Suspect]
     Indication: RHEUMATOID ARTHRITIS
     Dosage: 50 MG, WEEKLY
     Route: 058
     Dates: start: 20091106
  2. CELEBREX [Suspect]
     Indication: ARTHRITIS
     Dosage: 200 MG, TWICE DAILY
     Route: 048
     Dates: start: 2008, end: 2014
  3. ALDACTONE [Suspect]
     Indication: FLUID RETENTION
     Dosage: 25 MG, ONCE DAILY
     Dates: end: 2012
  4. ACIPHEX [Suspect]
     Indication: GASTROOESOPHAGEAL REFLUX DISEASE
     Dosage: 20 MG, ONCE DAILY
     Dates: start: 2012, end: 2014
  5. ARAVA [Suspect]
     Indication: RHEUMATOID ARTHRITIS
     Dosage: 10 MG, UNK
     Dates: start: 2008, end: 2014
  6. PLAQUENIL [Suspect]
     Indication: RHEUMATOID ARTHRITIS
     Dosage: 200 MG, UNK
     Dates: start: 2012, end: 2014

REACTIONS (9)
  - Infection [Unknown]
  - Cough [Recovered/Resolved]
  - Laceration [Recovered/Resolved]
  - Tooth disorder [Recovered/Resolved]
  - Condition aggravated [Recovered/Resolved]
  - Nasopharyngitis [Recovered/Resolved]
  - Sinusitis [Unknown]
  - Upper respiratory tract infection [Unknown]
  - Tooth infection [Unknown]
